FAERS Safety Report 8513084-6 (Version None)
Quarter: 2012Q3

REPORT INFORMATION
  Report Type: 
  Country: None (occurrence: None)
  Receive Date: 20120705
  Receipt Date: 20120618
  Transmission Date: 20120928
  Serious: Yes (Other)
  Sender: FDA-Public Use
  Company Number: 2012MA007775

PATIENT
  Age: 63 Year
  Sex: Male

DRUGS (1)
  1. METFORMIN HYDROCHLORIDE [Suspect]

REACTIONS (6)
  - DYSPNOEA [None]
  - PULSE ABNORMAL [None]
  - ANGINA PECTORIS [None]
  - PRODUCT QUALITY ISSUE [None]
  - CHEST PAIN [None]
  - PRODUCT SUBSTITUTION ISSUE [None]
